FAERS Safety Report 8517081-6 (Version None)
Quarter: 2012Q3

REPORT INFORMATION
  Report Type: 
  Country: None (occurrence: None)
  Receive Date: 20120718
  Receipt Date: 20120716
  Transmission Date: 20120928
  Serious: Yes (Other)
  Sender: FDA-Public Use
  Company Number: US-PFIZER INC-2012171079

PATIENT
  Sex: Male
  Weight: 81.633 kg

DRUGS (1)
  1. CHANTIX [Suspect]
     Indication: SMOKING CESSATION THERAPY
     Dosage: 0.5 MG, DAILY
     Dates: start: 20100601, end: 20100101

REACTIONS (5)
  - PHARYNGEAL INJURY [None]
  - HEAD INJURY [None]
  - BACK INJURY [None]
  - JOINT INJURY [None]
  - SUICIDE ATTEMPT [None]
